FAERS Safety Report 4541823-8 (Version None)
Quarter: 2004Q4

REPORT INFORMATION
  Report Type: 
  Country: None (occurrence: None)
  Receive Date: 20041230
  Receipt Date: 20041220
  Transmission Date: 20050328
  Serious: Yes (Other)
  Sender: FDA-Public Use
  Company Number: PHEH2004US13595

PATIENT
  Age: 48 Year
  Sex: Female

DRUGS (1)
  1. CLOZARIL [Suspect]
     Dosage: 550 MG, QD
     Route: 048

REACTIONS (3)
  - MYOCARDIAL INFARCTION [None]
  - VOMITING [None]
  - WEIGHT DECREASED [None]
